FAERS Safety Report 12510471 (Version 2)
Quarter: 2016Q3

REPORT INFORMATION
  Report Type: Spontaneous
  Country: BR (occurrence: BR)
  Receive Date: 20160629
  Receipt Date: 20160805
  Transmission Date: 20161109
  Serious: Yes (Other)
  Sender: FDA-Public Use
  Company Number: BR-SYMPLMED PHARMACEUTICALS-2016SYMPLMED000251

PATIENT

DRUGS (4)
  1. ACERTIL [Suspect]
     Active Substance: PERINDOPRIL ARGININE
     Indication: HYPERTENSION
     Dosage: 10 MG, QD
     Route: 048
     Dates: start: 2016, end: 201603
  2. ACERTIL [Suspect]
     Active Substance: PERINDOPRIL ARGININE
     Dosage: 10 MG, QD
     Route: 048
     Dates: start: 201603, end: 2016
  3. ANTIHYPERTENSIVES [Concomitant]
     Active Substance: UNSPECIFIED INGREDIENT
     Indication: HYPERTENSION
     Dosage: UNK, QD
  4. ACERTIL [Suspect]
     Active Substance: PERINDOPRIL ARGININE
     Dosage: 10 MG, QD
     Route: 065
     Dates: start: 2016

REACTIONS (5)
  - Dyspnoea [Recovered/Resolved]
  - Headache [Recovered/Resolved]
  - Drug ineffective [Recovered/Resolved]
  - Product colour issue [Recovered/Resolved]
  - Chest pain [Recovered/Resolved]

NARRATIVE: CASE EVENT DATE: 201603
